FAERS Safety Report 7051584-9 (Version None)
Quarter: 2010Q4

REPORT INFORMATION
  Report Type: 
  Country: None (occurrence: None)
  Receive Date: 20101019
  Receipt Date: 20101010
  Transmission Date: 20110411
  Serious: Yes (Disabling)
  Sender: FDA-Public Use
  Company Number: TN-ROCHE-706683

PATIENT
  Age: 55 Year
  Sex: Male
  Weight: 55 kg

DRUGS (2)
  1. PEGASYS [Suspect]
     Route: 058
     Dates: start: 20090606, end: 20100423
  2. COPEGUS [Suspect]
     Route: 048
     Dates: start: 20090606, end: 20100423

REACTIONS (5)
  - ABSCESS [None]
  - PRURITUS [None]
  - RASH MACULO-PAPULAR [None]
  - SKIN EROSION [None]
  - TOXIC SKIN ERUPTION [None]
